FAERS Safety Report 8511762-6 (Version None)
Quarter: 2012Q3

REPORT INFORMATION
  Report Type: 
  Country: None (occurrence: None)
  Receive Date: 20120711
  Receipt Date: 20120711
  Transmission Date: 20120928
  Serious: Yes (Hospitalization, Other)
  Sender: FDA-Public Use
  Company Number: None

PATIENT
  Age: 20 Month
  Sex: Male
  Weight: 11 kg

DRUGS (1)
  1. AVEENO BABY CALMING COMFORT BABY LOTION [Suspect]
     Indication: DRY SKIN PROPHYLAXIS
     Dosage: QUARTER,TWICE/DAY,TOPICAL
     Route: 061

REACTIONS (3)
  - STAPHYLOCOCCAL INFECTION [None]
  - ERYTHEMA [None]
  - OEDEMA PERIPHERAL [None]
